FAERS Safety Report 24287609 (Version 1)
Quarter: 2024Q3

REPORT INFORMATION
  Report Type: Spontaneous
  Country: GB (occurrence: GB)
  Receive Date: 20240905
  Receipt Date: 20240905
  Transmission Date: 20241017
  Serious: Yes (Other)
  Sender: TEVA
  Company Number: None

PATIENT
  Age: 90 Year
  Sex: Female

DRUGS (13)
  1. SPIRONOLACTONE [Suspect]
     Active Substance: SPIRONOLACTONE
     Dosage: 25 MG TABLETS, TO BE TAKEN IN THE MORNING,
     Route: 065
  2. LAXIDO ORANGE [Concomitant]
     Dosage: ORAL POWDER SACHETS SUGAR FREE DISSOLVE CONTENTS OF ONE SACHET?IN HALF A GLASS ( 125 ML) OF WATER...
     Route: 048
  3. DIAZEPAM [Concomitant]
     Active Substance: DIAZEPAM
  4. SIMVASTATIN [Concomitant]
     Active Substance: SIMVASTATIN
     Dosage: AT NIGHT
  5. OMEPRAZOLE [Concomitant]
     Active Substance: OMEPRAZOLE
  6. ACETAMINOPHEN [Concomitant]
     Active Substance: ACETAMINOPHEN
     Dosage: EVERY 4 - 6 HOURS UP TO FOUR TIMESA DAY
  7. FUROSEMIDE [Concomitant]
     Active Substance: FUROSEMIDE
     Dosage: EACH MORNING,
  8. Adcal [Concomitant]
     Dosage: EACH MORNING AND EVENING,  TUTTI FRUTTI,
     Route: 048
  9. LEVETIRACETAM [Concomitant]
     Active Substance: LEVETIRACETAM
  10. EDOXABAN [Concomitant]
     Active Substance: EDOXABAN
  11. BISOPROLOL [Concomitant]
     Active Substance: BISOPROLOL\BISOPROLOL FUMARATE
     Dosage: IN THE MORNING.,
  12. LEVOTHYROXINE SODIUM [Concomitant]
     Active Substance: LEVOTHYROXINE SODIUM
     Dosage: EACH MORNING AT LEAST 30 MINUTES BEFORE BREAKFAST, CAFFEINE - CONTAINING DRINKS OR OTHER MEDICATION,
  13. MIRTAZAPINE [Concomitant]
     Active Substance: MIRTAZAPINE
     Dosage: AT NIGHT,

REACTIONS (1)
  - Hyperkalaemia [Recovered/Resolved with Sequelae]
